FAERS Safety Report 8425780 (Version 2)
Quarter: 2012Q4

REPORT INFORMATION
  Report Type: 
  Country: JP (occurrence: JP)
  Receive Date: 20120224
  Receipt Date: 20120906
  Transmission Date: 20130627
  Serious: Yes (Hospitalization, Other)
  Sender: FDA-Public Use
  Company Number: PHHY2012JP013149

PATIENT
  Age: 75 None
  Sex: Female
  Weight: 49 kg

DRUGS (6)
  1. RASILEZ [Suspect]
     Indication: HYPERTENSION
     Dosage: 300 mg, QD
     Route: 048
     Dates: start: 20100121, end: 20111213
  2. EQUA [Suspect]
     Dosage: 100 mg, UNK
     Dates: start: 20110623
  3. CONIEL [Concomitant]
     Dosage: 8 mg, UNK
     Route: 048
     Dates: start: 20090423
  4. CALBLOCK [Concomitant]
     Dosage: 16 mg, UNK
     Route: 048
  5. IRBESARTAN [Concomitant]
     Dosage: 200 mg, UNK
     Route: 048
     Dates: start: 20101221
  6. ANGIOTENSIN RECEPTOR BLOCKERS [Concomitant]

REACTIONS (7)
  - Renal failure acute [Recovering/Resolving]
  - Dehydration [Recovering/Resolving]
  - Blood pressure decreased [Recovering/Resolving]
  - Diarrhoea [Recovering/Resolving]
  - Pyrexia [Recovering/Resolving]
  - Weight decreased [Recovering/Resolving]
  - Vomiting [Recovering/Resolving]
